FAERS Safety Report 18668398 (Version 2)
Quarter: 2021Q1

REPORT INFORMATION
  Report Type: Report from Study
  Country: US (occurrence: US)
  Receive Date: 20201228
  Receipt Date: 20210224
  Transmission Date: 20210419
  Serious: Yes (Hospitalization, Other)
  Sender: FDA-Public Use
  Company Number: US-SHIRE-US202011490

PATIENT
  Age: 21 Year
  Sex: Male

DRUGS (4)
  1. TEDUGLUTIDE [Suspect]
     Active Substance: TEDUGLUTIDE
     Indication: SHORT-BOWEL SYNDROME
     Dosage: 0.231 MILLIGRAM, QD
     Route: 058
     Dates: start: 20191025
  2. TEDUGLUTIDE [Suspect]
     Active Substance: TEDUGLUTIDE
     Indication: SHORT-BOWEL SYNDROME
     Dosage: 0.231 MILLIGRAM, QD
     Route: 058
     Dates: start: 20191025
  3. TEDUGLUTIDE [Suspect]
     Active Substance: TEDUGLUTIDE
     Indication: SHORT-BOWEL SYNDROME
     Dosage: 0.231 MILLIGRAM, QD
     Route: 058
     Dates: start: 20191025
  4. TEDUGLUTIDE [Suspect]
     Active Substance: TEDUGLUTIDE
     Indication: SHORT-BOWEL SYNDROME
     Dosage: 0.231 MILLIGRAM, QD
     Route: 058
     Dates: start: 20191025

REACTIONS (7)
  - Sleep disorder [Unknown]
  - Vascular device infection [Unknown]
  - Haemorrhage [Unknown]
  - Depression [Unknown]
  - Drug ineffective [Unknown]
  - Weight decreased [Unknown]
  - Rash [Unknown]

NARRATIVE: CASE EVENT DATE: 202003
